FAERS Safety Report 6146345-9 (Version None)
Quarter: 2009Q2

REPORT INFORMATION
  Report Type: 
  Country: None (occurrence: None)
  Receive Date: 20090407
  Receipt Date: 20090326
  Transmission Date: 20091009
  Serious: Yes (Death, Hospitalization)
  Sender: FDA-Public Use
  Company Number: ZA-PFIZER INC-2009169866

PATIENT

DRUGS (1)
  1. SUTENT [Suspect]
     Indication: METASTATIC RENAL CELL CARCINOMA
     Dosage: 25 MG, UNK
     Route: 048
     Dates: start: 20090201

REACTIONS (5)
  - ABDOMINAL PAIN [None]
  - DUODENAL ULCER [None]
  - HAEMORRHAGE [None]
  - HEPATIC FAILURE [None]
  - RENAL FAILURE [None]
